FAERS Safety Report 6349320-4 (Version None)
Quarter: 2009Q3

REPORT INFORMATION
  Report Type: 
  Country: None (occurrence: None)
  Receive Date: 20090911
  Receipt Date: 20090903
  Transmission Date: 20100115
  Serious: Yes (Other)
  Sender: FDA-Public Use
  Company Number: B0591612A

PATIENT
  Age: 7 Month
  Sex: Male

DRUGS (1)
  1. AMOXICILLIN AND CLAVULANATE POTASSIUM [Suspect]
     Indication: URINARY TRACT INFECTION
     Route: 042

REACTIONS (10)
  - ANAEMIA [None]
  - C-REACTIVE PROTEIN INCREASED [None]
  - FACE OEDEMA [None]
  - IRRITABILITY [None]
  - LEUKOCYTOCLASTIC VASCULITIS [None]
  - OEDEMA [None]
  - OEDEMA PERIPHERAL [None]
  - PLATELET COUNT INCREASED [None]
  - RASH MACULO-PAPULAR [None]
  - SKIN LESION [None]
